FAERS Safety Report 5152650-5 (Version None)
Quarter: 2006Q4

REPORT INFORMATION
  Report Type: 
  Country: None (occurrence: None)
  Receive Date: 20061109
  Receipt Date: 20061031
  Transmission Date: 20070319
  Serious: Yes (Other)
  Sender: FDA-Public Use
  Company Number: 2006133427

PATIENT
  Sex: Female

DRUGS (1)
  1. CALADRYL [Suspect]
     Indication: URTICARIA
     Dosage: 1/2 A 6 OUNCE BOTTLE
     Dates: start: 20061031, end: 20061031

REACTIONS (4)
  - BACK PAIN [None]
  - FEELING ABNORMAL [None]
  - HYPERSENSITIVITY [None]
  - THIRST [None]
